FAERS Safety Report 8244774-0 (Version None)
Quarter: 2012Q1

REPORT INFORMATION
  Report Type: 
  Country: None (occurrence: None)
  Receive Date: 20120329
  Receipt Date: 20110330
  Transmission Date: 20120608
  Serious: No
  Sender: FDA-Public Use
  Company Number: US-MYLANLABS-2011S1006782

PATIENT
  Age: 47 Year
  Sex: Female
  Weight: 61.24 kg

DRUGS (1)
  1. FENTANYL-100 [Suspect]
     Indication: MUSCULAR DYSTROPHY
     Dosage: CHANGED Q 72 HOURS.
     Route: 062
     Dates: start: 20110201

REACTIONS (2)
  - HYPERSOMNIA [None]
  - HEADACHE [None]
